FAERS Safety Report 24637265 (Version 1)
Quarter: 2024Q4

REPORT INFORMATION
  Report Type: Spontaneous
  Country: US (occurrence: US)
  Receive Date: 20241119
  Receipt Date: 20241119
  Transmission Date: 20250114
  Serious: Yes (Other)
  Sender: THEA PHARMA INC.
  Company Number: US-THEA-2024002550

PATIENT
  Sex: Female

DRUGS (1)
  1. IVIZIA [Suspect]
     Active Substance: POVIDONE
     Indication: Product used for unknown indication
     Route: 047

REACTIONS (1)
  - Cataract [Unknown]
